FAERS Safety Report 24555733 (Version 5)
Quarter: 2025Q3

REPORT INFORMATION
  Report Type: Spontaneous
  Country: JP (occurrence: JP)
  Receive Date: 20241028
  Receipt Date: 20250810
  Transmission Date: 20251020
  Serious: Yes (Other)
  Sender: ALEXION PHARMACEUTICALS
  Company Number: JP-ASTRAZENECA-240104800_012620_P_1

PATIENT
  Age: 77 Year
  Sex: Female
  Weight: 47 kg

DRUGS (18)
  1. TRUQAP [Suspect]
     Active Substance: CAPIVASERTIB
     Indication: Breast cancer
     Dosage: ON A 4-DAY-ON, 3-DAY-OFF SCHEDULE
     Dates: start: 20240806, end: 20240827
  2. TRUQAP [Suspect]
     Active Substance: CAPIVASERTIB
     Dosage: ON A 4-DAY-ON, 3-DAY-OFF SCHEDULE
     Dates: start: 20240917, end: 20240918
  3. TRUQAP [Suspect]
     Active Substance: CAPIVASERTIB
  4. TRUQAP [Suspect]
     Active Substance: CAPIVASERTIB
  5. TRUQAP [Suspect]
     Active Substance: CAPIVASERTIB
     Dosage: DOSE UNKNOWN, ADMINISTERED FOR 4 CONSECTIVE DAYS, AND THEN WITHDRAWN FOR 3 DAYS
  6. TRUQAP [Suspect]
     Active Substance: CAPIVASERTIB
     Dosage: ON A 4-DAY-ON, 3-DAY-OFF SCHEDULE
     Dates: start: 20240919, end: 20241104
  7. TRUQAP [Suspect]
     Active Substance: CAPIVASERTIB
     Dosage: ON A 4-DAY-ON, 3-DAY-OFF SCHEDULE
     Dates: start: 20241119
  8. FULVESTRANT [Suspect]
     Active Substance: FULVESTRANT
     Indication: Breast cancer
     Dosage: UNK MILLIGRAM
     Dates: start: 20240723
  9. FULVESTRANT [Suspect]
     Active Substance: FULVESTRANT
  10. LEVETIRACETAM [Suspect]
     Active Substance: LEVETIRACETAM
  11. DENOSUMAB [Concomitant]
     Active Substance: DENOSUMAB
     Indication: Metastases to bone
     Dates: start: 20240723, end: 20240723
  12. LINAGLIPTIN [Concomitant]
     Active Substance: LINAGLIPTIN
     Indication: Diabetes mellitus
     Dates: start: 20230920, end: 20240906
  13. SITAGLIPTIN [Concomitant]
     Active Substance: SITAGLIPTIN
     Indication: Diabetes mellitus
     Dates: start: 20240907
  14. CALCIUM CARBONATE\CHOLECALCIFEROL\MAGNESIUM CARBONATE [Concomitant]
     Active Substance: CALCIUM CARBONATE\CHOLECALCIFEROL\MAGNESIUM CARBONATE
     Dates: start: 20231011, end: 20240723
  15. CALCIUM CARBONATE\CHOLECALCIFEROL\MAGNESIUM CARBONATE [Concomitant]
     Active Substance: CALCIUM CARBONATE\CHOLECALCIFEROL\MAGNESIUM CARBONATE
     Indication: Metastases to bone
  16. BILANOA OD [Concomitant]
     Dosage: DOSE UNKNOWN
     Dates: start: 20240806
  17. BILANOA OD [Concomitant]
     Indication: Rash
  18. FUROSEMIDE [Concomitant]
     Active Substance: FUROSEMIDE
     Indication: Oedema

REACTIONS (6)
  - Epilepsy [Recovering/Resolving]
  - Cerebral haemorrhage [Unknown]
  - Urticaria [Recovered/Resolved]
  - Hepatic function abnormal [Unknown]
  - Platelet count decreased [Recovering/Resolving]
  - Oedema [Unknown]

NARRATIVE: CASE EVENT DATE: 20240820
